FAERS Safety Report 8928684 (Version 1)
Quarter: 2012Q4

REPORT INFORMATION
  Report Type: 
  Country: US (occurrence: US)
  Receive Date: 20121128
  Receipt Date: 20121128
  Transmission Date: 20130627
  Serious: Yes (Hospitalization)
  Sender: FDA-Public Use
  Company Number: US-009507513-1211USA009274

PATIENT
  Age: 3 Year
  Sex: Male

DRUGS (3)
  1. TEMOZOLOMIDE [Suspect]
     Indication: NEUROBLASTOMA
     Dosage: UNK
     Dates: start: 20100611, end: 20100625
  2. BEVACIZUMAB [Suspect]
     Indication: NEUROBLASTOMA
     Dosage: UNK
     Dates: start: 20100611, end: 20100625
  3. IRINOTECAN HYDROCHLORIDE [Suspect]
     Indication: NEUROBLASTOMA
     Dosage: UNK
     Dates: start: 20100611, end: 20100625

REACTIONS (3)
  - Febrile neutropenia [Recovered/Resolved]
  - Hypokalaemia [Recovered/Resolved]
  - Diarrhoea [Recovered/Resolved]
